FAERS Safety Report 7900857-3 (Version None)
Quarter: 2011Q4

REPORT INFORMATION
  Report Type: 
  Country: None (occurrence: None)
  Receive Date: 20111108
  Receipt Date: 20111108
  Transmission Date: 20120403
  Serious: Yes (Other)
  Sender: FDA-Public Use
  Company Number: None

PATIENT
  Age: 47 Year
  Sex: Female
  Weight: 65.77 kg

DRUGS (1)
  1. SULFASALAZINE [Suspect]
     Indication: ANKYLOSING SPONDYLITIS
     Dosage: 1 TABLET
     Route: 048
     Dates: start: 20111025, end: 20111106

REACTIONS (8)
  - ASTHENIA [None]
  - PHOTOSENSITIVITY REACTION [None]
  - SOMNOLENCE [None]
  - MALAISE [None]
  - HEADACHE [None]
  - OROPHARYNGEAL PAIN [None]
  - NAUSEA [None]
  - DYSPNOEA [None]
